FAERS Safety Report 21742731 (Version 3)
Quarter: 2023Q1

REPORT INFORMATION
  Report Type: Report from Study
  Country: US (occurrence: US)
  Receive Date: 20221217
  Receipt Date: 20230203
  Transmission Date: 20230418
  Serious: No
  Sender: FDA-Public Use
  Company Number: US-002147023-NVSC2022US292049

PATIENT
  Sex: Female

DRUGS (1)
  1. KISQALI [Suspect]
     Active Substance: RIBOCICLIB
     Indication: Product used for unknown indication
     Dosage: 200 MG (START DATE: 01 DECEMBER)
     Route: 048

REACTIONS (8)
  - Lip blister [Unknown]
  - Lip dry [Unknown]
  - Lip exfoliation [Unknown]
  - Chapped lips [Unknown]
  - Alopecia [Unknown]
  - Headache [Unknown]
  - Fatigue [Unknown]
  - Inappropriate schedule of product administration [Unknown]
